FAERS Safety Report 13802003 (Version 1)
Quarter: 2017Q3

REPORT INFORMATION
  Report Type: Spontaneous
  Country: US (occurrence: US)
  Receive Date: 20170727
  Receipt Date: 20170727
  Transmission Date: 20171127
  Serious: No
  Sender: FDA-Public Use
  Company Number: PHEH2017US022270

PATIENT
  Sex: Female

DRUGS (1)
  1. VOTRIENT [Suspect]
     Active Substance: PAZOPANIB HYDROCHLORIDE
     Indication: NEOPLASM MALIGNANT
     Dosage: 800 MG, QD
     Route: 048
     Dates: start: 20161102, end: 20170717

REACTIONS (7)
  - Headache [Unknown]
  - Ageusia [Unknown]
  - Nail bed bleeding [Unknown]
  - Nausea [Unknown]
  - Asthenia [Unknown]
  - Drug ineffective [Unknown]
  - Platelet count decreased [Unknown]
